FAERS Safety Report 7013027-0 (Version None)
Quarter: 2010Q3

REPORT INFORMATION
  Report Type: 
  Country: None (occurrence: None)
  Receive Date: 20100924
  Receipt Date: 20100914
  Transmission Date: 20110219
  Serious: Yes (Other)
  Sender: FDA-Public Use
  Company Number: SE-PFIZER INC-2010115854

PATIENT
  Age: 40 Year
  Sex: Female

DRUGS (2)
  1. LYRICA [Suspect]
     Indication: GENERALISED ANXIETY DISORDER
     Dosage: 75 MG, UNK
     Dates: start: 20091201
  2. MIRTAZAPINE [Concomitant]
     Dosage: UNK

REACTIONS (2)
  - SENSORY DISTURBANCE [None]
  - SLEEP DISORDER [None]
